FAERS Safety Report 4941499-1 (Version None)
Quarter: 2006Q1

REPORT INFORMATION
  Report Type: 
  Country: None (occurrence: None)
  Receive Date: 20060313
  Receipt Date: 20060227
  Transmission Date: 20060701
  Serious: Yes (Death, Life-Threatening, Hospitalization)
  Sender: FDA-Public Use
  Company Number: CL-199800022

PATIENT
  Sex: Female

DRUGS (2)
  1. REMICADE [Suspect]
     Route: 065
     Dates: start: 19980127
  2. REMICADE [Suspect]
     Indication: RHEUMATOID ARTHRITIS
     Route: 065
     Dates: start: 19980127

REACTIONS (1)
  - PLEURAL EFFUSION [None]
